FAERS Safety Report 12079750 (Version 6)
Quarter: 2017Q4

REPORT INFORMATION
  Report Type: Report from Study
  Country: None (occurrence: US)
  Receive Date: 20160216
  Receipt Date: 20171106
  Transmission Date: 20180320
  Serious: Yes (Hospitalization, Other)
  Sender: FDA-Public Use
  Company Number: US-ABBVIE-16K-163-1557304-00

PATIENT
  Sex: Male
  Weight: 77.18 kg

DRUGS (6)
  1. HUMIRA [Suspect]
     Active Substance: ADALIMUMAB
     Route: 058
     Dates: start: 2015, end: 2016
  2. BUPROPION. [Concomitant]
     Active Substance: BUPROPION
     Indication: DEPRESSION
  3. COUMADIN [Concomitant]
     Active Substance: WARFARIN SODIUM
     Indication: HEART VALVE REPLACEMENT
  4. BUPROPION. [Concomitant]
     Active Substance: BUPROPION
     Indication: ANXIETY
  5. CORLANOR [Suspect]
     Active Substance: IVABRADINE HYDROCHLORIDE
     Indication: CARDIAC DISORDER
     Route: 065
     Dates: start: 201604, end: 2016
  6. HUMIRA [Suspect]
     Active Substance: ADALIMUMAB
     Indication: PSORIATIC ARTHROPATHY
     Route: 058
     Dates: start: 2008, end: 2015

REACTIONS (13)
  - Ventricular tachycardia [Recovered/Resolved]
  - Psoriatic arthropathy [Recovering/Resolving]
  - Postoperative adhesion [Not Recovered/Not Resolved]
  - Diarrhoea [Recovered/Resolved]
  - Hypotension [Recovered/Resolved]
  - Breath sounds abnormal [Recovered/Resolved]
  - Ejection fraction decreased [Recovering/Resolving]
  - Abnormal clotting factor [Recovered/Resolved]
  - Cardiac failure congestive [Recovered/Resolved]
  - Atrial fibrillation [Recovered/Resolved]
  - Upper respiratory tract infection [Recovered/Resolved]
  - Pneumonia [Recovered/Resolved]
  - Rhinorrhoea [Recovered/Resolved]

NARRATIVE: CASE EVENT DATE: 2015
